FAERS Safety Report 8168168-1 (Version None)
Quarter: 2012Q1

REPORT INFORMATION
  Report Type: 
  Country: None (occurrence: None)
  Receive Date: 20120227
  Receipt Date: 20120222
  Transmission Date: 20120608
  Serious: Yes (Hospitalization, Disabling)
  Sender: FDA-Public Use
  Company Number: PHEH2012US002856

PATIENT
  Sex: Female
  Weight: 69.841 kg

DRUGS (12)
  1. OMEGA-3-ACID ETHYL ESTERS [Concomitant]
     Dosage: UNK UKN, UNK
  2. LANTUS [Concomitant]
     Indication: BLOOD GLUCOSE INCREASED
     Dosage: UNK UKN, UNK
     Route: 058
  3. SAXAGLIPTIN [Concomitant]
     Indication: BLOOD GLUCOSE INCREASED
     Dosage: UNK UKN, UNK
  4. FUROSEMIDE [Concomitant]
     Dosage: UNK UKN, UNK
  5. BYSTOLIC [Concomitant]
     Indication: BLOOD PRESSURE
     Dosage: UNK UKN, UNK
     Route: 048
  6. NOVOLOG [Concomitant]
     Indication: BLOOD GLUCOSE INCREASED
     Route: 058
  7. NEXIUM [Concomitant]
     Dosage: UNK UKN, UNK
  8. CYMBALTA [Concomitant]
     Dosage: UNK UKN, UNK
  9. TEKTURNA [Suspect]
     Indication: HYPERTENSION
     Dosage: 300 MG, QD
     Route: 048
     Dates: start: 20110207, end: 20120107
  10. LOVAZA [Concomitant]
     Indication: BLOOD TRIGLYCERIDES
     Dosage: UNK UKN, UNK
     Route: 048
  11. INSULIN HUMAN [Concomitant]
     Indication: BLOOD GLUCOSE INCREASED
     Dosage: UNK UKN, UNK
  12. BENICAR HCT [Concomitant]
     Dosage: UNK UKN, UNK

REACTIONS (3)
  - HYPOTENSION [None]
  - ELECTROLYTE IMBALANCE [None]
  - FALL [None]
